FAERS Safety Report 19731845 (Version 1)
Quarter: 2021Q3

REPORT INFORMATION
  Report Type: Spontaneous
  Country: GB (occurrence: GB)
  Receive Date: 20210820
  Receipt Date: 20210820
  Transmission Date: 20211014
  Serious: Yes (Hospitalization)
  Sender: FDA-Public Use
  Company Number: NVSC2021GB183491

PATIENT
  Age: 74 Year
  Sex: Female
  Weight: 85 kg

DRUGS (8)
  1. LOSARTAN. [Suspect]
     Active Substance: LOSARTAN
     Dosage: UNK
     Route: 048
     Dates: start: 20210804, end: 20210811
  2. INDAPAMIDE. [Concomitant]
     Active Substance: INDAPAMIDE
     Indication: ILL-DEFINED DISORDER
     Dosage: SPA HYPERTENSION PROTOCOL: TAKE ONE EACH MORNING
     Route: 065
     Dates: start: 20201123
  3. ESTRADIOL. [Concomitant]
     Active Substance: ESTRADIOL
     Indication: ILL-DEFINED DISORDER
     Dosage: USE AS DIRECTED
     Route: 065
     Dates: start: 20200211
  4. SERTRALINE [Concomitant]
     Active Substance: SERTRALINE HYDROCHLORIDE
     Indication: ILL-DEFINED DISORDER
     Dosage: TAKE HALF OF ONE TABLET DAILY FOR 1 WEEK THEN E...
     Route: 065
     Dates: start: 20210712, end: 20210809
  5. LOSARTAN. [Suspect]
     Active Substance: LOSARTAN
     Indication: ILL-DEFINED DISORDER
     Dosage: 1 DF, QD (TAKE ONE DAILY   )
     Route: 065
     Dates: start: 20210723
  6. ATORVASTATIN [Concomitant]
     Active Substance: ATORVASTATIN
     Indication: ILL-DEFINED DISORDER
     Dosage: TAKE ONE DAILY FOR PRIMARY PREVENTION
     Route: 065
     Dates: start: 20201019
  7. LOSARTAN. [Suspect]
     Active Substance: LOSARTAN
     Dosage: UNK
     Route: 065
     Dates: start: 20210811
  8. TROSPIUM [Concomitant]
     Active Substance: TROSPIUM
     Indication: ILL-DEFINED DISORDER
     Dosage: 1 DF, QD (ILL?DEFINED DISORDER)
     Route: 065
     Dates: start: 20200911

REACTIONS (1)
  - Adverse drug reaction [Not Recovered/Not Resolved]

NARRATIVE: CASE EVENT DATE: 20210804
